FAERS Safety Report 24842182 (Version 4)
Quarter: 2025Q1

REPORT INFORMATION
  Report Type: Spontaneous
  Country: US (occurrence: US)
  Receive Date: 20250115
  Receipt Date: 20250224
  Transmission Date: 20250408
  Serious: Yes (Other)
  Sender: SANOFI AVENTIS
  Company Number: US-SA-2025SA011049

PATIENT
  Age: 66 Year
  Sex: Male
  Weight: 71.21 kg

DRUGS (32)
  1. DUPIXENT [Suspect]
     Active Substance: DUPILUMAB
     Indication: Asthma
     Dosage: 300 MG, QOW
     Route: 058
     Dates: start: 2023
  2. FLUTICASONE PROPIONATE [Concomitant]
     Active Substance: FLUTICASONE PROPIONATE
  3. TRIAMCINOLONE ACETONIDE [Concomitant]
     Active Substance: TRIAMCINOLONE ACETONIDE
  4. VENTOLIN HFA [Concomitant]
     Active Substance: ALBUTEROL SULFATE
  5. NIFEDIPINE [Concomitant]
     Active Substance: NIFEDIPINE
  6. NAPROXEN [Concomitant]
     Active Substance: NAPROXEN
  7. NADOLOL [Concomitant]
     Active Substance: NADOLOL
  8. LORATADINE [Concomitant]
     Active Substance: LORATADINE
  9. HYOSCYAMINE SULFATE [Concomitant]
     Active Substance: HYOSCYAMINE SULFATE
  10. DOXYCYCLINE HYCLATE [Concomitant]
     Active Substance: DOXYCYCLINE HYCLATE
  11. DICYCLOMINE HYDROCHLORIDE [Concomitant]
     Active Substance: DICYCLOMINE HYDROCHLORIDE
  12. CLOBETASOL PROPIONATE [Concomitant]
     Active Substance: CLOBETASOL PROPIONATE
  13. CHOLESTYRAMINE [Concomitant]
     Active Substance: CHOLESTYRAMINE
  14. CALCIPOTRIENE [Concomitant]
     Active Substance: CALCIPOTRIENE
  15. BANOPHEN [Concomitant]
     Active Substance: DIPHENHYDRAMINE HYDROCHLORIDE
  16. ARMODAFINIL [Concomitant]
     Active Substance: ARMODAFINIL
  17. ALFUZOSIN HYDROCHLORIDE [Concomitant]
     Active Substance: ALFUZOSIN HYDROCHLORIDE
  18. AJOVY [Concomitant]
     Active Substance: FREMANEZUMAB-VFRM
  19. ACETAMINOPHEN [Concomitant]
     Active Substance: ACETAMINOPHEN
  20. OPZELURA [Concomitant]
     Active Substance: RUXOLITINIB PHOSPHATE
  21. ROSUVASTATIN CALCIUM [Concomitant]
     Active Substance: ROSUVASTATIN CALCIUM
  22. ITRACONAZOLE [Concomitant]
     Active Substance: ITRACONAZOLE
  23. DULOXETINE HYDROCHLORIDE [Concomitant]
     Active Substance: DULOXETINE HYDROCHLORIDE
  24. IBUPROFEN [Concomitant]
     Active Substance: IBUPROFEN
  25. ALFUZOSIN [Concomitant]
     Active Substance: ALFUZOSIN
  26. CHLORTHALIDONE [Concomitant]
     Active Substance: CHLORTHALIDONE
  27. TIZANIDINE [Concomitant]
     Active Substance: TIZANIDINE
  28. OMEPRAZOLE [Concomitant]
     Active Substance: OMEPRAZOLE
  29. METRONIDAZOLE [Concomitant]
     Active Substance: METRONIDAZOLE
  30. AJOVY [Concomitant]
     Active Substance: FREMANEZUMAB-VFRM
  31. METHOCARBAMOL [Concomitant]
     Active Substance: METHOCARBAMOL
  32. ETODOLAC [Concomitant]
     Active Substance: ETODOLAC

REACTIONS (4)
  - Prostate cancer [Unknown]
  - Rebound atopic dermatitis [Unknown]
  - Migraine [Unknown]
  - Asthma [Unknown]
